FAERS Safety Report 8861056 (Version 1)
Quarter: 2012Q4

REPORT INFORMATION
  Report Type: 
  Country: US (occurrence: US)
  Receive Date: 20121025
  Receipt Date: 20121025
  Transmission Date: 20130627
  Serious: No
  Sender: FDA-Public Use
  Company Number: US-AMGEN-USASP2012012593

PATIENT
  Age: 64 Year
  Sex: Male
  Weight: 85.26 kg

DRUGS (6)
  1. ENBREL [Suspect]
     Indication: PRODUCT USED FOR UNKNOWN INDICATION
     Dosage: 50 mg, qwk
     Route: 058
  2. K-DUR [Concomitant]
     Dosage: 10 mEq, UNK
  3. LOVASTATIN [Concomitant]
     Dosage: 10 mg, UNK
  4. HYDROCHLOROTH [Concomitant]
     Dosage: 12.5 mg, UNK
  5. VITAMIN D /00107901/ [Concomitant]
     Dosage: UNK unit, UNK
  6. FISH OIL [Concomitant]
     Dosage: UNK

REACTIONS (1)
  - Injection site erythema [Unknown]
